FAERS Safety Report 7551893-0 (Version None)
Quarter: 2011Q2

REPORT INFORMATION
  Report Type: 
  Country: None (occurrence: None)
  Receive Date: 20110616
  Receipt Date: 20110607
  Transmission Date: 20111010
  Serious: Yes (Other)
  Sender: FDA-Public Use
  Company Number: BE-ASTRAZENECA-2011SE35249

PATIENT
  Age: 56 Year
  Sex: Male

DRUGS (2)
  1. ACETYLSALICYL ACID [Concomitant]
  2. CRESTOR [Suspect]
     Indication: PROPHYLAXIS
     Route: 048
     Dates: start: 20090101, end: 20100101

REACTIONS (1)
  - TENDONITIS [None]
